FAERS Safety Report 6171244-6 (Version None)
Quarter: 2009Q2

REPORT INFORMATION
  Report Type: 
  Country: None (occurrence: None)
  Receive Date: 20090429
  Receipt Date: 20090423
  Transmission Date: 20091009
  Serious: Yes (Other)
  Sender: FDA-Public Use
  Company Number: CA-ASTRAZENECA-2009UW10147

PATIENT
  Age: 75 Year
  Sex: Female
  Weight: 47.2 kg

DRUGS (5)
  1. ARIMIDEX [Suspect]
     Indication: BREAST CANCER STAGE IV
     Route: 048
     Dates: start: 20050801
  2. ARIMIDEX [Suspect]
     Route: 048
     Dates: start: 20090418, end: 20090418
  3. ATIVAN [Concomitant]
     Indication: INSOMNIA
  4. LEVOTHYROXINE SODIUM [Concomitant]
  5. CALTRATE [Concomitant]

REACTIONS (18)
  - ACCIDENTAL OVERDOSE [None]
  - ANXIETY [None]
  - ARTHRALGIA [None]
  - ASTHENIA [None]
  - BLOOD PRESSURE INCREASED [None]
  - BLUE TOE SYNDROME [None]
  - CRYING [None]
  - DEPRESSION [None]
  - FATIGUE [None]
  - INSOMNIA [None]
  - JOINT STIFFNESS [None]
  - LIBIDO DECREASED [None]
  - LYMPHOEDEMA [None]
  - NAUSEA [None]
  - PARAESTHESIA [None]
  - PARANOIA [None]
  - SJOGREN'S SYNDROME [None]
  - THIRST [None]
